FAERS Safety Report 17301269 (Version 4)
Quarter: 2020Q1

REPORT INFORMATION
  Report Type: Report from Study
  Country: US (occurrence: US)
  Receive Date: 20200122
  Receipt Date: 20200302
  Transmission Date: 20200409
  Serious: Yes (Hospitalization, Other)
  Sender: FDA-Public Use
  Company Number: US-PFIZER INC-2019504765

PATIENT
  Age: 75 Year
  Sex: Female

DRUGS (6)
  1. IBRANCE [Suspect]
     Active Substance: PALBOCICLIB
     Indication: BREAST CANCER METASTATIC
     Dosage: 125 MG, UNK
     Route: 048
     Dates: start: 20191106, end: 20191216
  2. IBRANCE [Suspect]
     Active Substance: PALBOCICLIB
     Dosage: 125 MG, CYCLIC (DAILY FOR 21 DAYS, AND OFF 7 DAYS)
     Route: 048
     Dates: start: 20191115
  3. LETROZOLE. [Concomitant]
     Active Substance: LETROZOLE
     Dosage: 2.5 MG, DAILY
     Route: 048
     Dates: start: 20191116
  4. IBRANCE [Suspect]
     Active Substance: PALBOCICLIB
     Dosage: 125 MG, UNK
     Route: 048
     Dates: start: 20200121
  5. IBRANCE [Suspect]
     Active Substance: PALBOCICLIB
     Dosage: 125 MG, DAILY FOR 21 DAYS AND OFF 7 DAYS
     Route: 048
     Dates: start: 20200218
  6. LETROZOLE. [Concomitant]
     Active Substance: LETROZOLE
     Indication: BREAST CANCER FEMALE
     Dosage: 2.5 MG, UNK
     Route: 048
     Dates: start: 20191115

REACTIONS (4)
  - Bone marrow failure [Unknown]
  - Urinary tract infection [Unknown]
  - Pulmonary embolism [Recovered/Resolved]
  - Dyspnoea [Recovered/Resolved]

NARRATIVE: CASE EVENT DATE: 2019
